FAERS Safety Report 25076680 (Version 1)
Quarter: 2025Q1

REPORT INFORMATION
  Report Type: Spontaneous
  Country: US (occurrence: US)
  Receive Date: 20250313
  Receipt Date: 20250313
  Transmission Date: 20250409
  Serious: No
  Sender: DAIICHI
  Company Number: US-DAIICHI SANKYO, INC.-DS-2025-130509-USAA

PATIENT
  Age: 28 Year
  Sex: Female

DRUGS (1)
  1. ENHERTU [Suspect]
     Active Substance: FAM-TRASTUZUMAB DERUXTECAN-NXKI
     Indication: Breast cancer metastatic
     Route: 065
     Dates: start: 202502

REACTIONS (1)
  - Human chorionic gonadotropin positive [Unknown]

NARRATIVE: CASE EVENT DATE: 20250301
